FAERS Safety Report 23197843 (Version 1)
Quarter: 2023Q4

REPORT INFORMATION
  Report Type: Spontaneous
  Country: AU (occurrence: AU)
  Receive Date: 20231117
  Receipt Date: 20231117
  Transmission Date: 20240109
  Serious: Yes (Hospitalization)
  Sender: FDA-Public Use
  Company Number: AU-002147023-NVSC2023AU238759

PATIENT
  Age: 11 Year
  Sex: Male
  Weight: 70.3 kg

DRUGS (4)
  1. TRAMETINIB [Suspect]
     Active Substance: TRAMETINIB
     Indication: Glioma
     Dosage: 1.5 MG
     Route: 048
     Dates: start: 20220526, end: 20231017
  2. TRAMETINIB [Suspect]
     Active Substance: TRAMETINIB
     Indication: Glioblastoma
     Dosage: 2 MG
     Route: 048
     Dates: start: 20231017
  3. RITALIN [Concomitant]
     Active Substance: METHYLPHENIDATE HYDROCHLORIDE
     Indication: Attention deficit hyperactivity disorder
     Dosage: 10 MG, QD (HAD BEEN WITHHELD SINCE BRAIN TUMOUR DIAGNOSIS)
     Route: 048
     Dates: start: 20231017
  4. CLOBAZAM [Concomitant]
     Active Substance: CLOBAZAM
     Indication: Seizure prophylaxis
     Dosage: 10 MG, (NOCTE) (CHANGED FROM KEPPRA DUE TO LIKELY TEMOZOLOMIDE-DRIVEN SEVERE MYELOSUPPRESSION)
     Route: 048
     Dates: start: 20220208

REACTIONS (3)
  - Pneumonia viral [Recovered/Resolved]
  - Paronychia [Recovered/Resolved]
  - Skin toxicity [Unknown]

NARRATIVE: CASE EVENT DATE: 20220825
